FAERS Safety Report 20407889 (Version 2)
Quarter: 2022Q1

REPORT INFORMATION
  Report Type: Report from Study
  Country: US (occurrence: US)
  Receive Date: 20220201
  Receipt Date: 20220331
  Transmission Date: 20220423
  Serious: Yes (Other)
  Sender: FDA-Public Use
  Company Number: US-ABBVIE-22K-163-4251567-00

PATIENT
  Age: 57 Year
  Sex: Male
  Weight: 86.260 kg

DRUGS (1)
  1. HUMIRA [Suspect]
     Active Substance: ADALIMUMAB
     Indication: Psoriasis
     Dosage: CITRATE FREE
     Route: 058
     Dates: end: 202201

REACTIONS (5)
  - Hernia [Unknown]
  - Umbilical hernia [Recovered/Resolved]
  - Inguinal hernia [Recovered/Resolved]
  - Hepatic steatosis [Not Recovered/Not Resolved]
  - Aspartate aminotransferase increased [Not Recovered/Not Resolved]

NARRATIVE: CASE EVENT DATE: 20200905
